FAERS Safety Report 8259373-4 (Version None)
Quarter: 2012Q2

REPORT INFORMATION
  Report Type: 
  Country: None (occurrence: None)
  Receive Date: 20120404
  Receipt Date: 20120328
  Transmission Date: 20120825
  Serious: Yes (Other)
  Sender: FDA-Public Use
  Company Number: DE-UCBSA-047498

PATIENT
  Age: 66 Year
  Sex: Female

DRUGS (20)
  1. PAROXETINE HCL [Suspect]
  2. THIORIDAZINE HCL [Suspect]
     Dosage: TOTAL AMOUNT : 75 MG, 3 TABLET
     Dates: start: 20111211, end: 20111211
  3. LERCANIDIPINE [Suspect]
  4. FLUPIRTINE MALEATE [Suspect]
  5. THIORIDAZINE HCL [Suspect]
  6. FUROSEMIDE [Suspect]
     Dosage: TOTAL AMOUNT : 40 MG, 1 TABLET
     Dates: start: 20111211, end: 20111211
  7. LERCANIDIPINE [Suspect]
     Dosage: TOTAL AMOUNT : 20 MG, 1 TABLET
     Dates: start: 20111211, end: 20111211
  8. KEPPRA [Suspect]
  9. PAROXETINE HCL [Suspect]
     Dosage: TOTAL AMOUNT : 20 MG, 1 TABLET
     Dates: start: 20111211, end: 20111211
  10. CHLORPROTIXEN [Suspect]
  11. METOPROLOL TARTRATE [Suspect]
     Dosage: TOTAL AMOUNT: 150 MG, 1.5 TABLET
     Dates: start: 20111211, end: 20111211
  12. FLUPIRTINE MALEATE [Suspect]
     Dosage: 3 TABLET
     Dates: start: 20111211, end: 20111211
  13. KEPPRA [Suspect]
     Dosage: TOTAL AMOUNT : 3000 MG
     Dates: start: 20111211, end: 20111211
  14. CHLORPROTIXEN [Suspect]
     Dosage: TOTAL AMOUNT : 50 MG, 1 TABLET
     Dates: start: 20111211, end: 20111211
  15. METOPROLOL TARTRATE [Suspect]
  16. FUROSEMIDE [Suspect]
  17. AKINETON [Suspect]
  18. RAMIPRIL [Suspect]
     Dosage: TOTAL AMOUNT : 10 MG, 1 TABLET
     Dates: start: 20111211, end: 20111211
  19. RAMIPRIL [Suspect]
  20. AKINETON [Suspect]
     Dosage: 1 TABLET
     Dates: start: 20111211, end: 20111211

REACTIONS (4)
  - TACHYCARDIA [None]
  - HYPOTENSION [None]
  - INCORRECT DOSE ADMINISTERED [None]
  - SOMNOLENCE [None]
